FAERS Safety Report 18675363 (Version 3)
Quarter: 2021Q1

REPORT INFORMATION
  Report Type: Spontaneous
  Country: JP (occurrence: JP)
  Receive Date: 20201229
  Receipt Date: 20210223
  Transmission Date: 20210419
  Serious: Yes (Hospitalization)
  Sender: FDA-Public Use
  Company Number: JP-JNJFOC-20201242428

PATIENT
  Age: 12 Year
  Sex: Male
  Weight: 25 kg

DRUGS (2)
  1. STELARA [Suspect]
     Active Substance: USTEKINUMAB
     Indication: AUTOIMMUNE ENTEROPATHY
     Route: 042
     Dates: start: 20201204
  2. REMICADE [Suspect]
     Active Substance: INFLIXIMAB
     Indication: AUTOIMMUNE ENTEROPATHY
     Dosage: DOSE UNKNOWN
     Route: 042
     Dates: end: 2020

REACTIONS (4)
  - Hospitalisation [Not Recovered/Not Resolved]
  - Product administered to patient of inappropriate age [Unknown]
  - Off label use [Unknown]
  - Product use in unapproved indication [Unknown]

NARRATIVE: CASE EVENT DATE: 20201204
